FAERS Safety Report 5594453-3 (Version None)
Quarter: 2008Q1

REPORT INFORMATION
  Report Type: 
  Country: None (occurrence: None)
  Receive Date: 20080117
  Receipt Date: 20071217
  Transmission Date: 20080703
  Serious: No
  Sender: FDA-Public Use
  Company Number: US-BAYER-200716568NA

PATIENT
  Age: 57 Year
  Sex: Male

DRUGS (9)
  1. LEVITRA [Suspect]
     Indication: ERECTILE DYSFUNCTION
     Dosage: TOTAL DAILY DOSE: 20 MG  UNIT DOSE: 20 MG
     Route: 048
     Dates: start: 20071215, end: 20071215
  2. LEVITRA [Suspect]
     Route: 048
     Dates: start: 20070201
  3. ADVAIR DISKUS 100/50 [Concomitant]
  4. TRAZODONE HCL [Concomitant]
  5. WELLBUTRIN [Concomitant]
  6. AMANTADINE HCL [Concomitant]
  7. RISPERDAL [Concomitant]
  8. ALLEGRA [Concomitant]
  9. FLONASE [Concomitant]

REACTIONS (1)
  - SPONTANEOUS PENILE ERECTION [None]
